FAERS Safety Report 5456593-9 (Version None)
Quarter: 2007Q3

REPORT INFORMATION
  Report Type: 
  Country: None (occurrence: None)
  Receive Date: 20070918
  Receipt Date: 20070907
  Transmission Date: 20080115
  Serious: Yes (Hospitalization, Other)
  Sender: FDA-Public Use
  Company Number: US-SANOFI-SYNTHELABO-A03200705471

PATIENT
  Sex: Male

DRUGS (7)
  1. PLAVIX [Suspect]
     Indication: STENT PLACEMENT
     Route: 048
     Dates: start: 20030101, end: 20070906
  2. ASPIRIN [Concomitant]
     Route: 048
     Dates: start: 20030101
  3. SIMVASTATIN [Concomitant]
  4. EZETIMIBE [Concomitant]
  5. FLOMAX [Concomitant]
     Dosage: UNK
     Route: 048
  6. TOPROL-XL [Concomitant]
     Route: 048
  7. NORVASC [Concomitant]
     Route: 048

REACTIONS (4)
  - CONTUSION [None]
  - DRUG INEFFECTIVE [None]
  - MYELODYSPLASTIC SYNDROME [None]
  - MYOCARDIAL INFARCTION [None]
